FAERS Safety Report 25535963 (Version 1)
Quarter: 2025Q3

REPORT INFORMATION
  Report Type: Spontaneous
  Country: US (occurrence: US)
  Receive Date: 20250709
  Receipt Date: 20250709
  Transmission Date: 20251020
  Serious: No
  Sender: BRAINTREE
  Company Number: US-BRAINTREE LABORATORIES, INC.-2025BTE00367

PATIENT
  Age: 81 Year
  Sex: Female
  Weight: 64.399 kg

DRUGS (5)
  1. SUFLAVE [Suspect]
     Active Substance: MAGNESIUM SULFATE ANHYDROUS\POLYETHYLENE GLYCOL 3350\POTASSIUM CHLORIDE\SODIUM CHLORIDE\SODIUM SULFA
     Indication: Colonoscopy
     Route: 048
     Dates: start: 20250528, end: 202505
  2. EXEMESTANE [Concomitant]
     Active Substance: EXEMESTANE
  3. GABAPENTIN [Concomitant]
     Active Substance: GABAPENTIN
  4. MYRBETRIQ [Concomitant]
     Active Substance: MIRABEGRON
  5. VITAMINS NOS [Concomitant]
     Active Substance: VITAMINS

REACTIONS (2)
  - Retching [Recovered/Resolved]
  - Dysgeusia [Recovered/Resolved]

NARRATIVE: CASE EVENT DATE: 20250528
